FAERS Safety Report 11350418 (Version 1)
Quarter: 2015Q3

REPORT INFORMATION
  Report Type: Spontaneous
  Country: US (occurrence: None)
  Receive Date: 20150805
  Receipt Date: 20150805
  Transmission Date: 20151125
  Serious: No
  Sender: FDA-Public Use
  Company Number: None

PATIENT
  Age: 43 Year
  Sex: Male

DRUGS (1)
  1. RIVAROXABAN [Suspect]
     Active Substance: RIVAROXABAN
     Indication: ATRIAL FIBRILLATION
     Dosage: 20 MG AT BEDTIME  PO
     Route: 048
     Dates: start: 20141016, end: 20141105

REACTIONS (4)
  - Endocarditis [None]
  - Staphylococcal bacteraemia [None]
  - Haemorrhage [None]
  - Epistaxis [None]

NARRATIVE: CASE EVENT DATE: 20141105
